FAERS Safety Report 17304894 (Version 5)
Quarter: 2020Q4

REPORT INFORMATION
  Report Type: Spontaneous
  Country: US (occurrence: US)
  Receive Date: 20200123
  Receipt Date: 20201013
  Transmission Date: 20210113
  Serious: No
  Sender: FDA-Public Use
  Company Number: US-PFIZER INC-2020032073

PATIENT
  Age: 47 Year
  Sex: Female
  Weight: 76.19 kg

DRUGS (3)
  1. DILANTIN [Concomitant]
     Active Substance: PHENYTOIN
     Dosage: 300 MG, 1X/DAY
     Dates: start: 1995
  2. LYRICA [Suspect]
     Active Substance: PREGABALIN
     Indication: SEIZURE
     Dosage: 525 MG, DAILY (STRENGTH: 75 MG, 3 IN THE MORNING, 4 AT NIGHT)
     Route: 048
  3. VITAMIN B12 [Concomitant]
     Active Substance: CYANOCOBALAMIN
     Indication: VITAMIN B12 DECREASED
     Dosage: UNK UNK, MONTHLY(EVERY MONTH)

REACTIONS (3)
  - Confusional state [Not Recovered/Not Resolved]
  - Anxiety [Unknown]
  - Balance disorder [Unknown]
